FAERS Safety Report 7226613-X (Version None)
Quarter: 2011Q1

REPORT INFORMATION
  Report Type: 
  Country: None (occurrence: None)
  Receive Date: 20110105
  Receipt Date: 20101025
  Transmission Date: 20110831
  Serious: No
  Sender: FDA-Public Use
  Company Number: USA/USA/10/0016470

PATIENT
  Age: 71 Year
  Sex: Female
  Weight: 120 kg

DRUGS (6)
  1. SIMVASTATIN [Concomitant]
  2. LEVOXYL (LEVOTHYROXINW SODIUM) [Concomitant]
  3. METFORMIN [Concomitant]
  4. BENAZEPRIL HYDROCHLORIDE [Concomitant]
  5. NATEGLINIDE [Suspect]
     Indication: DIABETES MELLITUS
     Dosage: 120 MG, 3 IN 1 D, ORAL
     Route: 048
     Dates: start: 20101022, end: 20101023
  6. ATENOLOL [Concomitant]

REACTIONS (4)
  - DYSGEUSIA [None]
  - PRODUCT QUALITY ISSUE [None]
  - PRODUCT COATING ISSUE [None]
  - PRODUCT SUBSTITUTION ISSUE [None]
